FAERS Safety Report 25161186 (Version 1)
Quarter: 2025Q2

REPORT INFORMATION
  Report Type: Spontaneous
  Country: ME (occurrence: ME)
  Receive Date: 20250404
  Receipt Date: 20250404
  Transmission Date: 20250717
  Serious: Yes (Other)
  Sender: MERCK SHARP AND DOHME
  Company Number: ME-009507513-2270915

PATIENT
  Age: 62 Year
  Sex: Male

DRUGS (1)
  1. KEYTRUDA [Suspect]
     Active Substance: PEMBROLIZUMAB
     Indication: Squamous cell carcinoma of pharynx
     Dates: start: 2022, end: 2025

REACTIONS (10)
  - Myocardial infarction [Unknown]
  - Weight increased [Unknown]
  - Localised oedema [Unknown]
  - Pleural thickening [Unknown]
  - Therapy partial responder [Unknown]
  - Soft tissue disorder [Unknown]
  - Rash [Recovered/Resolved]
  - Salivary hyposecretion [Unknown]
  - Dizziness [Unknown]
  - Coronary artery occlusion [Unknown]

NARRATIVE: CASE EVENT DATE: 20220712
